FAERS Safety Report 4328404-6 (Version None)
Quarter: 2004Q1

REPORT INFORMATION
  Report Type: 
  Country: None (occurrence: None)
  Receive Date: 20040331
  Receipt Date: 20040323
  Transmission Date: 20041129
  Serious: Yes (Other)
  Sender: FDA-Public Use
  Company Number: DE-BRISTOL-MYERS SQUIBB COMPANY-12541736

PATIENT
  Age: 26 Year
  Sex: Male

DRUGS (3)
  1. CISPLATIN [Suspect]
     Indication: TESTIS CANCER
  2. ETOPOSIDE [Suspect]
     Indication: TESTIS CANCER
  3. BLEOMYCIN SULFATE [Suspect]
     Indication: TESTIS CANCER

REACTIONS (1)
  - ISCHAEMIC STROKE [None]
